FAERS Safety Report 9549073 (Version 3)
Quarter: 2013Q4

REPORT INFORMATION
  Report Type: Report from Study
  Country: US (occurrence: US)
  Receive Date: 20130924
  Receipt Date: 20131121
  Transmission Date: 20140711
  Serious: Yes (Hospitalization, Other)
  Sender: FDA-Public Use
  Company Number: US-ABBVIE-13P-163-1148661-00

PATIENT
  Age: 64 Year
  Sex: Male
  Weight: 107 kg

DRUGS (7)
  1. HUMIRA [Suspect]
     Indication: CROHN^S DISEASE
     Route: 058
     Dates: start: 201306, end: 201309
  2. UNSPECIFIEDMORAL SEDATIVES [Suspect]
     Indication: PRODUCT USED FOR UNKNOWN INDICATION
  3. METHOTREXATE [Concomitant]
     Indication: CROHN^S DISEASE
     Route: 058
     Dates: start: 2010
  4. LOMOTIL [Concomitant]
     Indication: DIARRHOEA
     Dosage: 1-2 TABS Q 6HRS
     Route: 048
     Dates: start: 2012
  5. FOLIC ACID [Concomitant]
     Indication: PRODUCT USED FOR UNKNOWN INDICATION
  6. IMODIUM [Concomitant]
     Indication: PRODUCT USED FOR UNKNOWN INDICATION
  7. ALPRAZOLAM [Concomitant]
     Indication: INSOMNIA
     Dosage: QHS
     Route: 048
     Dates: start: 2000

REACTIONS (10)
  - Transient ischaemic attack [Recovered/Resolved]
  - Orthostatic hypotension [Recovered/Resolved]
  - Diarrhoea [Not Recovered/Not Resolved]
  - Occult blood positive [Recovered/Resolved]
  - Drug ineffective [Not Recovered/Not Resolved]
  - Dehydration [Unknown]
  - Electrolyte imbalance [Unknown]
  - Muscular weakness [Recovered/Resolved]
  - Dysarthria [Recovered/Resolved]
  - Adverse drug reaction [Unknown]
